FAERS Safety Report 7093531-X (Version None)
Quarter: 2010Q4

REPORT INFORMATION
  Report Type: 
  Country: None (occurrence: None)
  Receive Date: 20101029
  Receipt Date: 20101007
  Transmission Date: 20110411
  Serious: No
  Sender: FDA-Public Use
  Company Number: 1000015922

PATIENT
  Age: 55 Year
  Sex: Male

DRUGS (2)
  1. ESCITALOPRAM [Suspect]
     Indication: ANXIETY
     Dosage: 5 MG (5 MG, 1 IN 1 D), ORAL
     Route: 048
     Dates: start: 20100107, end: 20100112
  2. LORAZEPAM [Concomitant]

REACTIONS (7)
  - ANXIETY [None]
  - DELUSION [None]
  - HEART RATE INCREASED [None]
  - NAUSEA [None]
  - NERVOUSNESS [None]
  - PANIC ATTACK [None]
  - SPEECH DISORDER [None]
